FAERS Safety Report 9664565 (Version 1)
Quarter: 2013Q4

REPORT INFORMATION
  Report Type: Spontaneous
  Country: IT (occurrence: IT)
  Receive Date: 20131101
  Receipt Date: 20131101
  Transmission Date: 20140711
  Serious: Yes (Other)
  Sender: FDA-Public Use
  Company Number: IT-TEVA-441461ISR

PATIENT
  Age: 20 Year
  Sex: Female

DRUGS (1)
  1. KETOPROFENE [Suspect]
     Dates: start: 20130709, end: 20130709

REACTIONS (5)
  - Asphyxia [Recovering/Resolving]
  - Pruritus [Recovering/Resolving]
  - Erythema [Recovering/Resolving]
  - Urticaria [Recovering/Resolving]
  - Asthenia [Recovering/Resolving]
